FAERS Safety Report 15367481 (Version 2)
Quarter: 2018Q4

REPORT INFORMATION
  Report Type: Spontaneous
  Country: US (occurrence: US)
  Receive Date: 20180910
  Receipt Date: 20181026
  Transmission Date: 20190204
  Serious: Yes (Hospitalization, Other)
  Sender: FDA-Public Use
  Company Number: US-ROCHE-2182232

PATIENT
  Age: 74 Year
  Sex: Female
  Weight: 69.46 kg

DRUGS (14)
  1. LISINOPRIL. [Concomitant]
     Active Substance: LISINOPRIL
     Route: 048
  2. ACTEMRA [Suspect]
     Active Substance: TOCILIZUMAB
     Route: 042
     Dates: start: 20180719
  3. TAGAMET HB [Concomitant]
     Active Substance: CIMETIDINE
     Route: 048
  4. OXYGEN. [Concomitant]
     Active Substance: OXYGEN
     Route: 065
  5. ACTEMRA [Suspect]
     Active Substance: TOCILIZUMAB
     Route: 042
     Dates: start: 20180816
  6. RAYOS [Concomitant]
     Active Substance: PREDNISONE
     Dosage: 2 MG TAKEN AT 10 PM EACH NIGHT.
     Route: 048
  7. TYLENOL [Concomitant]
     Active Substance: ACETAMINOPHEN
     Route: 048
  8. ACTEMRA [Suspect]
     Active Substance: TOCILIZUMAB
     Indication: RHEUMATOID ARTHRITIS
     Dosage: ONGOING: NO
     Route: 042
     Dates: start: 20180301
  9. ACTEMRA [Suspect]
     Active Substance: TOCILIZUMAB
     Route: 042
     Dates: start: 20180621
  10. COUMADIN [Concomitant]
     Active Substance: WARFARIN SODIUM
     Route: 048
  11. DILTIAZEM HCL [Concomitant]
     Active Substance: DILTIAZEM HYDROCHLORIDE
     Route: 048
  12. FUROSEMIDE. [Concomitant]
     Active Substance: FUROSEMIDE
     Route: 048
  13. PROVENTIL HFA [Concomitant]
     Active Substance: ALBUTEROL SULFATE
  14. BREO ELLIPTA [Concomitant]
     Active Substance: FLUTICASONE FUROATE\VILANTEROL TRIFENATATE
     Dosage: 1 PUFF ONCE A DAY
     Route: 065

REACTIONS (25)
  - Purpura [Recovered/Resolved]
  - Abdominal pain [Unknown]
  - Pancreatic duct dilatation [Unknown]
  - Oesophageal candidiasis [Unknown]
  - Drug hypersensitivity [Recovered/Resolved]
  - Syncope [Unknown]
  - Ecchymosis [Unknown]
  - White blood cell disorder [Unknown]
  - Retching [Unknown]
  - Palpable purpura [Unknown]
  - Oedema [Unknown]
  - Oesophageal infection [Recovered/Resolved]
  - Loss of consciousness [Recovered/Resolved]
  - Diarrhoea [Recovered/Resolved]
  - Thrombocytopenia [Unknown]
  - Scoliosis [Unknown]
  - Hypogammaglobulinaemia [Unknown]
  - Neutropenia [Recovered/Resolved]
  - Gastrointestinal wall thickening [Unknown]
  - Pulmonary oedema [Recovered/Resolved]
  - Erythema [Unknown]
  - Musculoskeletal chest pain [Unknown]
  - Osteopenia [Unknown]
  - Diarrhoea [Unknown]
  - Vomiting [Unknown]

NARRATIVE: CASE EVENT DATE: 201808
